FAERS Safety Report 19195936 (Version 3)
Quarter: 2021Q3

REPORT INFORMATION
  Report Type: Spontaneous
  Country: US (occurrence: US)
  Receive Date: 20210429
  Receipt Date: 20210901
  Transmission Date: 20211014
  Serious: Yes (Hospitalization)
  Sender: FDA-Public Use
  Company Number: US-AMGEN-USASP2021061965

PATIENT
  Age: 83 Year
  Sex: Male

DRUGS (3)
  1. COVID?19 VACCINE [Concomitant]
     Dosage: UNK
     Dates: start: 20210128
  2. COVID?19 VACCINE [Concomitant]
     Dosage: UNK
     Dates: start: 20210225
  3. REPATHA [Suspect]
     Active Substance: EVOLOCUMAB
     Indication: BLOOD CHOLESTEROL INCREASED
     Dosage: 140 MILLIGRAM, Q2WK
     Route: 065
     Dates: start: 202102

REACTIONS (5)
  - Diplopia [Not Recovered/Not Resolved]
  - Dizziness [Not Recovered/Not Resolved]
  - Dyspnoea [Unknown]
  - Loss of personal independence in daily activities [Unknown]
  - Impaired driving ability [Unknown]

NARRATIVE: CASE EVENT DATE: 2021
